FAERS Safety Report 10195638 (Version 1)
Quarter: 2014Q2

REPORT INFORMATION
  Report Type: Spontaneous
  Country: BR (occurrence: BR)
  Receive Date: 20140527
  Receipt Date: 20140527
  Transmission Date: 20141212
  Serious: Yes (Hospitalization)
  Sender: FDA-Public Use
  Company Number: BR-ROCHE-1407302

PATIENT
  Age: 78 Year
  Sex: Female
  Weight: 67 kg

DRUGS (7)
  1. RIVOTRIL [Suspect]
     Indication: INSOMNIA
     Route: 048
     Dates: start: 1998
  2. RIVOTRIL [Suspect]
     Indication: DEPRESSION
  3. LYRICA [Concomitant]
     Indication: PAIN
     Dosage: TWO TABLETS BEFORE SLEEPING
     Route: 065
  4. GLIFAGE [Concomitant]
     Indication: DIABETES MELLITUS
     Route: 065
  5. VESICARE [Concomitant]
     Route: 065
  6. NEUROVITAN (JAPAN) [Concomitant]
     Indication: CATARACT
  7. MELOCOX [Concomitant]
     Indication: PAIN
     Dosage: AS REQUIRED
     Route: 065

REACTIONS (3)
  - Intervertebral disc protrusion [Unknown]
  - Nephrolithiasis [Unknown]
  - Nosocomial infection [Unknown]
